FAERS Safety Report 11741728 (Version 1)
Quarter: 2015Q4

REPORT INFORMATION
  Report Type: Spontaneous
  Country: US (occurrence: None)
  Receive Date: 20151113
  Receipt Date: 20151113
  Transmission Date: 20160304
  Serious: Yes (Life-Threatening, Hospitalization, Disabling)
  Sender: FDA-Public Use
  Company Number: None

PATIENT
  Age: 62 Year
  Sex: Female
  Weight: 79.38 kg

DRUGS (13)
  1. METOPROLOL [Concomitant]
     Active Substance: METOPROLOL
  2. PREDNISONE. [Concomitant]
     Active Substance: PREDNISONE
  3. NYSTATIN. [Concomitant]
     Active Substance: NYSTATIN
  4. CALCIUM  WITH VITAMIN D [Concomitant]
     Active Substance: CALCIUM\VITAMIN D
  5. CENTRUM VITAMINS [Concomitant]
  6. RESTASIS [Concomitant]
     Active Substance: CYCLOSPORINE
  7. CIPRO [Suspect]
     Active Substance: CIPROFLOXACIN HYDROCHLORIDE
     Indication: URINARY TRACT INFECTION
     Dosage: TAKEN BY MOUTH
     Route: 048
     Dates: start: 20150805, end: 20150806
  8. PANTOPRAZOLE [Concomitant]
     Active Substance: PANTOPRAZOLE SODIUM
  9. ATIVAN [Concomitant]
     Active Substance: LORAZEPAM
  10. CITALOPRAM [Concomitant]
     Active Substance: CITALOPRAM HYDROBROMIDE
  11. TYLENOL [Concomitant]
     Active Substance: ACETAMINOPHEN
  12. MELATONIN [Concomitant]
     Active Substance: MELATONIN
  13. VALERIAN [Concomitant]
     Active Substance: VALERIAN

REACTIONS (5)
  - Platelet count decreased [None]
  - Gingival bleeding [None]
  - Fatigue [None]
  - Contusion [None]
  - Anxiety [None]

NARRATIVE: CASE EVENT DATE: 20150806
